FAERS Safety Report 8470908-9 (Version None)
Quarter: 2012Q2

REPORT INFORMATION
  Report Type: 
  Country: None (occurrence: None)
  Receive Date: 20120627
  Receipt Date: 20120619
  Transmission Date: 20120825
  Serious: Yes (Other)
  Sender: FDA-Public Use
  Company Number: US-SANOFI-AVENTIS-2012SA009617

PATIENT
  Age: 73 Year
  Sex: Male

DRUGS (6)
  1. WARFARIN SODIUM [Concomitant]
  2. PREVACID [Concomitant]
  3. HUMULIN N [Concomitant]
  4. ANTIGLAUCOMA PREPARATIONS AND MIOTICS [Concomitant]
     Indication: GLAUCOMA
  5. MULTAQ [Suspect]
     Indication: ATRIAL FIBRILLATION
     Route: 048
     Dates: start: 20110101
  6. LIPITOR [Concomitant]

REACTIONS (3)
  - DYSGEUSIA [None]
  - PROSTATIC SPECIFIC ANTIGEN INCREASED [None]
  - HEART RATE DECREASED [None]
